FAERS Safety Report 10946150 (Version 1)
Quarter: 2015Q1

REPORT INFORMATION
  Report Type: Spontaneous
  Country: US (occurrence: None)
  Receive Date: 20150212
  Receipt Date: 20150212
  Transmission Date: 20150721
  Serious: No
  Sender: FDA-Public Use
  Company Number: TPA2011A00883

PATIENT
  Age: 87 Year
  Sex: Female
  Weight: 77.11 kg

DRUGS (4)
  1. ULORIC [Suspect]
     Active Substance: FEBUXOSTAT
     Indication: GOUT
     Route: 048
     Dates: start: 201012, end: 20110228
  2. PREDNISONE. [Concomitant]
     Active Substance: PREDNISONE
  3. WARFARIN [Concomitant]
     Active Substance: WARFARIN
  4. LASIX [Concomitant]
     Active Substance: FUROSEMIDE

REACTIONS (8)
  - Blood calcium decreased [None]
  - Dysgeusia [None]
  - Diarrhoea [None]
  - Dry mouth [None]
  - Cough [None]
  - Pain in extremity [None]
  - Nasal dryness [None]
  - Muscle spasms [None]

NARRATIVE: CASE EVENT DATE: 2011
